FAERS Safety Report 11185863 (Version 1)
Quarter: 2015Q2

REPORT INFORMATION
  Report Type: Spontaneous
  Country: US (occurrence: US)
  Receive Date: 20150612
  Receipt Date: 20150612
  Transmission Date: 20150821
  Serious: No
  Sender: FDA-Public Use
  Company Number: US-GLAXOSMITHKLINE-US2015080929

PATIENT
  Sex: Male

DRUGS (1)
  1. ADVAIR HFA [Suspect]
     Active Substance: FLUTICASONE PROPIONATE\SALMETEROL XINAFOATE
     Indication: CHRONIC OBSTRUCTIVE PULMONARY DISEASE
     Dosage: 2 PUFF(S), BID
     Route: 055

REACTIONS (6)
  - Medication error [Unknown]
  - Product quality issue [Unknown]
  - Hyperhidrosis [Not Recovered/Not Resolved]
  - Device use error [Unknown]
  - Abdominal discomfort [Recovering/Resolving]
  - Dyspnoea exertional [Recovered/Resolved]
